FAERS Safety Report 10257316 (Version 1)
Quarter: 2014Q2

REPORT INFORMATION
  Report Type: Spontaneous
  Country: US (occurrence: None)
  Receive Date: 20140623
  Receipt Date: 20140623
  Transmission Date: 20141212
  Serious: Yes (Hospitalization)
  Sender: FDA-Public Use
  Company Number: None

PATIENT
  Age: 77 Year
  Sex: Male
  Weight: 100.5 kg

DRUGS (2)
  1. CARBOPLATIN [Suspect]
     Dosage: ONCE PATIENT RE-STARTS TREATMENT, HE WILL RECEIVE A DOSE LEVEL-1 REDUCTION PER PROTOCOL
     Dates: end: 20140402
  2. PACLITAXEL (TAXOL) [Suspect]
     Dates: end: 20140402

REACTIONS (12)
  - Neutropenia [None]
  - White blood cell count decreased [None]
  - Loss of consciousness [None]
  - Malaise [None]
  - Atrial fibrillation [None]
  - Renal cyst [None]
  - Septic shock [None]
  - Hypovolaemia [None]
  - Malnutrition [None]
  - Renal failure acute [None]
  - Ejection fraction decreased [None]
  - Drug effect increased [None]
